FAERS Safety Report 11320061 (Version 7)
Quarter: 2020Q4

REPORT INFORMATION
  Report Type: Report from Study
  Country: CA (occurrence: CA)
  Receive Date: 20150729
  Receipt Date: 20201201
  Transmission Date: 20210113
  Serious: Yes (Other)
  Sender: FDA-Public Use
  Company Number: PHHY2015CA052339

PATIENT
  Age: 14 Year
  Sex: Male

DRUGS (6)
  1. KINERET [Suspect]
     Active Substance: ANAKINRA
     Dosage: 100 MG, EVERY 3-4 DAYS
     Route: 065
  2. ILARIS [Suspect]
     Active Substance: CANAKINUMAB
     Indication: CHRONIC INFANTILE NEUROLOGICAL CUTANEOUS AND ARTICULAR SYNDROME
     Dosage: 300 MG, EVERY 4 WEEKS
     Route: 058
     Dates: start: 20150425, end: 20151109
  3. ILARIS [Suspect]
     Active Substance: CANAKINUMAB
     Dosage: 600 MG, EVERY 4 WEEKS
     Route: 058
     Dates: start: 20180519
  4. KINERET [Suspect]
     Active Substance: ANAKINRA
     Indication: PRODUCT USED FOR UNKNOWN INDICATION
     Dosage: UNK
     Route: 065
  5. COLCHICINE. [Suspect]
     Active Substance: COLCHICINE
     Indication: PRODUCT USED FOR UNKNOWN INDICATION
     Dosage: UNK, QD
     Route: 065
  6. KINERET [Suspect]
     Active Substance: ANAKINRA
     Dosage: 2 DF, PRN
     Route: 065
     Dates: start: 20180711

REACTIONS (25)
  - Condition aggravated [Unknown]
  - Withdrawal syndrome [Unknown]
  - Inflammatory marker increased [Unknown]
  - Pyrexia [Unknown]
  - Drug intolerance [Unknown]
  - Gene mutation [Unknown]
  - Intracranial pressure increased [Unknown]
  - Uveitis [Unknown]
  - Chronic infantile neurological cutaneous and articular syndrome [Unknown]
  - Arthralgia [Unknown]
  - Neurological symptom [Unknown]
  - Serum amyloid A protein increased [Unknown]
  - Drug ineffective [Unknown]
  - Fatigue [Unknown]
  - Mouth ulceration [Unknown]
  - Rash [Unknown]
  - Incorrect dose administered [Unknown]
  - Joint swelling [Unknown]
  - Nausea [Unknown]
  - Brain injury [Unknown]
  - Deafness [Unknown]
  - Malaise [Unknown]
  - Pain [Unknown]
  - Conjunctivitis [Unknown]
  - Headache [Unknown]

NARRATIVE: CASE EVENT DATE: 2015
